FAERS Safety Report 17538657 (Version 1)
Quarter: 2020Q1

REPORT INFORMATION
  Report Type: Spontaneous
  Country: US (occurrence: US)
  Receive Date: 20200313
  Receipt Date: 20200313
  Transmission Date: 20200409
  Serious: Yes (Death)
  Sender: FDA-Public Use
  Company Number: None

PATIENT
  Age: 93 Year
  Sex: Male
  Weight: 74.25 kg

DRUGS (17)
  1. CLONAZEPAM 0.5MG [Concomitant]
     Active Substance: CLONAZEPAM
  2. CARBIDOPA/LEVODOPA 25/100MG [Concomitant]
  3. NASONEX 50MCG [Concomitant]
  4. TEMOVATE 0.05% [Concomitant]
  5. FLOMAX 0.4MG [Concomitant]
  6. VITAMIN B12 1000MCG [Concomitant]
  7. AZILECT [Concomitant]
     Active Substance: RASAGILINE MESYLATE
  8. EXELON 13.3MG/24HRS [Concomitant]
  9. OMEPRAZOLE 20MG [Concomitant]
     Active Substance: OMEPRAZOLE
  10. CALCIUM 500MG [Concomitant]
  11. MULTIVITAMIN [Concomitant]
     Active Substance: VITAMINS
  12. PREDNISONE 10MG [Concomitant]
     Active Substance: PREDNISONE
  13. BACTRIM [Concomitant]
     Active Substance: SULFAMETHOXAZOLE\TRIMETHOPRIM
  14. ABIRATERONE. [Suspect]
     Active Substance: ABIRATERONE ACETATE
     Indication: PROSTATE CANCER
     Route: 048
     Dates: start: 20190115, end: 20200222
  15. LEVOFLOXACIN. [Concomitant]
     Active Substance: LEVOFLOXACIN
  16. CYMBALTA [Concomitant]
     Active Substance: DULOXETINE HYDROCHLORIDE
  17. GABAPENTIN 300MG [Concomitant]
     Active Substance: GABAPENTIN

REACTIONS (1)
  - Death [None]

NARRATIVE: CASE EVENT DATE: 20200222
